FAERS Safety Report 5630530-6 (Version None)
Quarter: 2008Q1

REPORT INFORMATION
  Report Type: 
  Country: None (occurrence: None)
  Receive Date: 20080219
  Receipt Date: 20080214
  Transmission Date: 20080703
  Serious: Yes (Death)
  Sender: FDA-Public Use
  Company Number: BR-ASTRAZENECA-2008UW03203

PATIENT
  Age: 69 Year
  Sex: Female

DRUGS (4)
  1. ARIMIDEX [Suspect]
     Indication: BREAST CANCER
     Route: 048
     Dates: start: 20041001
  2. INSULIN [Concomitant]
     Indication: DIABETES MELLITUS
     Dates: start: 19960101
  3. MALEATO DE ENALAPRIL [Concomitant]
     Indication: HYPERTENSION
     Route: 048
     Dates: start: 20000101
  4. GILFAGE [Concomitant]
     Indication: ILL-DEFINED DISORDER

REACTIONS (1)
  - GASTROINTESTINAL CARCINOMA [None]
